FAERS Safety Report 7147936-9 (Version None)
Quarter: 2010Q4

REPORT INFORMATION
  Report Type: 
  Country: None (occurrence: None)
  Receive Date: 20101209
  Receipt Date: 20101129
  Transmission Date: 20110411
  Serious: Yes (Other)
  Sender: FDA-Public Use
  Company Number: US-JNJFOC-20101200229

PATIENT
  Age: 72 Year
  Sex: Male
  Weight: 117.94 kg

DRUGS (3)
  1. EXTRA STRENGTH TYLENOL [Suspect]
     Indication: HEADACHE
     Route: 048
  2. EXTRA STRENGTH TYLENOL [Suspect]
     Dosage: FOR 2 TO 3 DAYS
     Route: 048
  3. HIGH BLOOD PRESSURE MEDICATIONS, NOS [Concomitant]
     Indication: HYPERTENSION
     Route: 065

REACTIONS (1)
  - HAEMATOCHEZIA [None]
